FAERS Safety Report 5225675-9 (Version None)
Quarter: 2007Q1

REPORT INFORMATION
  Report Type: 
  Country: None (occurrence: None)
  Receive Date: 20061201
  Receipt Date: 20061025
  Transmission Date: 20070707
  Serious: No
  Sender: FDA-Public Use
  Company Number: US200610004712

PATIENT
  Age: 58 Year
  Sex: Female

DRUGS (5)
  1. CYMBALTA [Suspect]
     Indication: DEPRESSION
     Dosage: 60 MG, EACH MORNING, ORAL
     Route: 048
     Dates: start: 20060901
  2. MECLIZINE [Concomitant]
  3. AMITRIPTYLINE HCL [Concomitant]
  4. MOBIC [Concomitant]
  5. AMBIEN [Concomitant]

REACTIONS (4)
  - DIZZINESS [None]
  - HOT FLUSH [None]
  - NAUSEA [None]
  - THROAT TIGHTNESS [None]
